FAERS Safety Report 7380657-6 (Version None)
Quarter: 2011Q1

REPORT INFORMATION
  Report Type: 
  Country: None (occurrence: None)
  Receive Date: 20110321
  Receipt Date: 20110304
  Transmission Date: 20110831
  Serious: Yes (Hospitalization, Other)
  Sender: FDA-Public Use
  Company Number: 2010P1003488

PATIENT
  Age: 70 Year
  Sex: Female
  Weight: 96.1626 kg

DRUGS (18)
  1. ISOSORBIDE M ER [Concomitant]
  2. LOSARTAN POTASSIUM [Concomitant]
  3. ULORIC [Concomitant]
  4. WARFARIN SODIUM [Suspect]
     Indication: CARDIOMYOPATHY
     Dosage: 4 MG;BID;PO
     Route: 048
     Dates: start: 20101001, end: 20110114
  5. WARFARIN SODIUM [Suspect]
     Indication: ATRIAL FIBRILLATION
     Dosage: 4 MG;BID;PO
     Route: 048
     Dates: start: 20101001, end: 20110114
  6. TRAMADOL HCL [Concomitant]
  7. TEKTURNA [Concomitant]
  8. POTASSIUM CHLORIDE ER [Concomitant]
  9. NITROGLIDE [Concomitant]
  10. LORATADINE [Concomitant]
  11. CRESTOR [Concomitant]
  12. COLCHICINE [Concomitant]
  13. FUROSEMIDE [Concomitant]
  14. STARLIX [Concomitant]
  15. FERROUS SULFATE TAB [Concomitant]
  16. VITAMIN D [Concomitant]
  17. BUSPAR [Concomitant]
  18. HYDROXYZINE [Concomitant]

REACTIONS (7)
  - TRANSIENT ISCHAEMIC ATTACK [None]
  - COAGULOPATHY [None]
  - BUNDLE BRANCH BLOCK LEFT [None]
  - PROTHROMBIN TIME PROLONGED [None]
  - INTERNATIONAL NORMALISED RATIO DECREASED [None]
  - CHEST PAIN [None]
  - PALPITATIONS [None]
